FAERS Safety Report 8756625 (Version 3)
Quarter: 2014Q1

REPORT INFORMATION
  Report Type: Spontaneous
  Country: US (occurrence: US)
  Receive Date: 20120828
  Receipt Date: 20140102
  Transmission Date: 20141002
  Serious: Yes (Hospitalization, Other)
  Sender: FDA-Public Use
  Company Number: US-BAYER-2012-087652

PATIENT
  Age: 31 Year
  Sex: Female
  Weight: 119.73 kg

DRUGS (14)
  1. YAZ [Suspect]
     Dosage: UNK
     Dates: start: 20110512, end: 201108
  2. YAZ [Suspect]
     Dosage: UNK
     Dates: start: 201205, end: 201208
  3. BEYAZ [Suspect]
     Dosage: UNK
     Dates: start: 201205, end: 201208
  4. BEYAZ [Suspect]
     Dosage: UNK
     Dates: start: 201205, end: 201208
  5. LISINOPRILHYDROCHLOROTHIAZIDE RATIOPHARM [Concomitant]
     Dosage: 20-25 MG
  6. PREDNISONE [Concomitant]
     Dosage: 20 MG, UNK
     Route: 048
  7. PREDNISONE [Concomitant]
     Dosage: 10 MG, UNK
  8. VENTOLIN HFA [Concomitant]
     Dosage: 90 ?G, UNK
  9. PROMETHAZINE [Concomitant]
     Dosage: 25 MG, EVERY 6 HOURS
     Route: 048
  10. VITAMINS WITH MINERALS [Concomitant]
     Dosage: 1 DAILY
     Route: 048
  11. TYLENOL W/CODEINE NO. 3 [Concomitant]
     Dosage: UNK UNK, PRN
     Route: 048
  12. NAPROXEN [Concomitant]
     Dosage: 500 MG, BID
     Route: 048
  13. ADVAIR DISKUS [Concomitant]
     Dosage: 1 PUFF(S), UNK
     Route: 045
  14. AMLODIPINE [Concomitant]
     Dosage: 5 MG, DAILY

REACTIONS (11)
  - Malaise [None]
  - Cholecystitis acute [None]
  - Abortion spontaneous [None]
  - Abortion spontaneous [None]
  - Injury [None]
  - Pain [None]
  - Emotional distress [None]
  - Anxiety [None]
  - Psychological trauma [None]
  - Depression [None]
  - Mental disorder [None]
